FAERS Safety Report 5952404-3 (Version None)
Quarter: 2008Q4

REPORT INFORMATION
  Report Type: 
  Country: None (occurrence: None)
  Receive Date: 20081113
  Receipt Date: 20081107
  Transmission Date: 20090506
  Serious: Yes (Death, Other)
  Sender: FDA-Public Use
  Company Number: US-AMGEN-QUU316150

PATIENT
  Sex: Male

DRUGS (6)
  1. ENBREL [Suspect]
     Indication: PSORIASIS
     Route: 058
     Dates: end: 20080201
  2. HUMULIN 70/30 [Concomitant]
  3. LESCOL [Concomitant]
  4. TRICOR [Concomitant]
  5. ZYRTEC [Concomitant]
  6. HUMIRA [Concomitant]

REACTIONS (2)
  - CREUTZFELDT-JAKOB DISEASE [None]
  - PNEUMONIA [None]
